FAERS Safety Report 8691739 (Version 2)
Quarter: 2012Q4

REPORT INFORMATION
  Report Type: 
  Country: FR (occurrence: FR)
  Receive Date: 20120730
  Receipt Date: 20120914
  Transmission Date: 20130627
  Serious: Yes (Life-Threatening, Hospitalization, Other)
  Sender: FDA-Public Use
  Company Number: FR-PFIZER INC-2012181360

PATIENT
  Age: 65 Year
  Sex: Male

DRUGS (11)
  1. CORDARONE [Suspect]
     Indication: ATRIAL FLUTTER
     Dosage: 1 DF, 1x/day, 5 days per week
     Route: 048
     Dates: start: 20120518, end: 20120630
  2. CERTICAN [Suspect]
     Indication: IMMUNOSUPPRESSANT DRUG THERAPY
     Dosage: 1 DF, 2x/day
     Route: 048
     Dates: start: 201201, end: 20120629
  3. MYFORTIC [Concomitant]
     Indication: IMMUNOSUPPRESSANT DRUG THERAPY
     Dosage: 360 mg, 2x/day
     Route: 048
     Dates: start: 201110, end: 20120630
  4. LASILIX [Concomitant]
     Dosage: UNK
     Dates: start: 201110, end: 201206
  5. CRESTOR [Concomitant]
     Dosage: UNK
     Dates: start: 201110, end: 201206
  6. DETENSIEL [Concomitant]
     Dosage: UNK
     Dates: end: 201206
  7. TRIATEC [Concomitant]
     Dosage: UNK
     Dates: start: 20120315, end: 20120601
  8. KARDEGIC [Concomitant]
     Dosage: UNK
     Dates: start: 201110, end: 201206
  9. CORTANCYL [Concomitant]
     Dosage: UNK
     Dates: end: 20120629
  10. MAG 2 [Concomitant]
     Dosage: UNK
     Dates: end: 20120629
  11. COUMADINE [Concomitant]
     Dosage: UNK
     Dates: start: 201110, end: 20120629

REACTIONS (5)
  - Interstitial lung disease [Recovered/Resolved]
  - Acute respiratory distress syndrome [Recovered/Resolved]
  - Acute pulmonary oedema [Recovered/Resolved]
  - Renal failure acute [Recovered/Resolved]
  - Pneumocystis test positive [Unknown]
